FAERS Safety Report 5117370-1 (Version None)
Quarter: 2006Q3

REPORT INFORMATION
  Report Type: 
  Country: None (occurrence: None)
  Receive Date: 20060929
  Receipt Date: 20060918
  Transmission Date: 20061208
  Serious: Yes (Death)
  Sender: FDA-Public Use
  Company Number: US-JNJFOC-20040306766

PATIENT
  Sex: Male

DRUGS (13)
  1. DURAGESIC-100 [Suspect]
     Route: 062
     Dates: end: 20040207
  2. DURAGESIC-100 [Suspect]
     Route: 062
     Dates: end: 20040207
  3. DURAGESIC-100 [Suspect]
     Route: 062
     Dates: end: 20040207
  4. DURAGESIC-100 [Suspect]
     Route: 062
     Dates: end: 20040207
  5. DURAGESIC-100 [Suspect]
     Route: 062
     Dates: end: 20040207
  6. DURAGESIC-100 [Suspect]
     Route: 062
     Dates: end: 20040207
  7. DURAGESIC-100 [Suspect]
     Route: 062
     Dates: end: 20040207
  8. DURAGESIC-100 [Suspect]
     Route: 062
     Dates: end: 20040207
  9. DURAGESIC-100 [Suspect]
     Indication: PAIN
     Route: 062
     Dates: end: 20040207
  10. MORPHINE SULFATE [Concomitant]
  11. FAMOTIDINE [Concomitant]
  12. METACLOPROMIDE [Concomitant]
  13. FLUOXETINE [Concomitant]

REACTIONS (23)
  - ABDOMINAL HERNIA [None]
  - ABNORMAL FAECES [None]
  - AGITATION [None]
  - APPLICATION SITE REACTION [None]
  - CELLULITIS [None]
  - CHEST PAIN [None]
  - COMA [None]
  - CONSTIPATION [None]
  - DYSPNOEA [None]
  - FALL [None]
  - HYPERHIDROSIS [None]
  - LETHARGY [None]
  - LOSS OF CONSCIOUSNESS [None]
  - NARCOTIC INTOXICATION [None]
  - OEDEMA PERIPHERAL [None]
  - OVERDOSE [None]
  - PSYCHOMOTOR HYPERACTIVITY [None]
  - RENAL FAILURE ACUTE [None]
  - RHABDOMYOLYSIS [None]
  - SMALL INTESTINAL OBSTRUCTION [None]
  - TACHYCARDIA [None]
  - THERAPEUTIC RESPONSE DECREASED [None]
  - WEIGHT INCREASED [None]
